FAERS Safety Report 4301736-3 (Version None)
Quarter: 2004Q1

REPORT INFORMATION
  Report Type: 
  Country: None (occurrence: None)
  Receive Date: 20040219
  Receipt Date: 20040210
  Transmission Date: 20041129
  Serious: Yes (Hospitalization)
  Sender: FDA-Public Use
  Company Number: US-JNJFOC-20040202610

PATIENT
  Age: 62 Year
  Sex: Female
  Weight: 81.7 kg

DRUGS (13)
  1. NATRECOR [Suspect]
     Indication: CARDIAC FAILURE CONGESTIVE
     Dosage: 0.01 UG/KG/MIN, INTRAVENOUS
     Route: 042
     Dates: start: 20030129
  2. HYDRALAZINE (HYDRALAZINE) TABLETS [Concomitant]
  3. IMDUR (ISOSORBIDE MONINITRATE) TABLETS [Concomitant]
  4. PLAVIX [Concomitant]
  5. TOPROL XL (METOPROLOL SUCCINATE) TABLETS [Concomitant]
  6. DEMEDEX (TORASEMIDE) TABLETS [Concomitant]
  7. NPH INSULIN [Concomitant]
  8. NITRO PATCH(GLYCERYL TRINITRATE) PATCH [Concomitant]
  9. ASPIRIN [Concomitant]
  10. COLACE (DOCUSATE SODIUM) [Concomitant]
  11. ZETIA (ALL OTHER NON-THERAPEUTIC PRODUCTS) [Concomitant]
  12. FEOSOL (FERROUS SULFATE) TABLETS [Concomitant]
  13. PROCRIT (ERYTHROPOIETIN) INJECTION [Concomitant]

REACTIONS (1)
  - PNEUMONIA [None]
